FAERS Safety Report 9849502 (Version 1)
Quarter: 2014Q1

REPORT INFORMATION
  Report Type: Spontaneous
  Country: US (occurrence: None)
  Receive Date: 20140127
  Receipt Date: 20140127
  Transmission Date: 20141002
  Serious: Yes (Other)
  Sender: FDA-Public Use
  Company Number: None

PATIENT
  Age: 9 Year
  Sex: Male
  Weight: 30.39 kg

DRUGS (1)
  1. SINGULAIR [Suspect]
     Indication: ASTHMA
     Dosage: 30 ONCE DAILY

REACTIONS (5)
  - Epistaxis [None]
  - Muscle disorder [None]
  - Fatigue [None]
  - Sensory disturbance [None]
  - Middle insomnia [None]
